FAERS Safety Report 10102285 (Version 1)
Quarter: 2014Q2

REPORT INFORMATION
  Report Type: Spontaneous
  Country: TR (occurrence: TR)
  Receive Date: 20140424
  Receipt Date: 20140424
  Transmission Date: 20141212
  Serious: Yes (Life-Threatening, Hospitalization, Other)
  Sender: FDA-Public Use
  Company Number: TR-WATSON-2014-07807

PATIENT
  Age: 6 Year
  Sex: Male
  Weight: 20 kg

DRUGS (1)
  1. VALPROIC ACID (UNKNOWN) [Suspect]
     Indication: CONVULSION
     Dosage: 20 MG/KG, DAILY
     Route: 065

REACTIONS (4)
  - Multi-organ failure [Recovered/Resolved]
  - Pancreatitis acute [Recovered/Resolved]
  - Thrombocytopenia [Recovered/Resolved]
  - Coagulopathy [Recovered/Resolved]
